FAERS Safety Report 22283356 (Version 5)
Quarter: 2023Q4

REPORT INFORMATION
  Report Type: Spontaneous
  Country: US (occurrence: US)
  Receive Date: 20230504
  Receipt Date: 20231023
  Transmission Date: 20240110
  Serious: No
  Sender: FDA-Public Use
  Company Number: US-PFIZER INC-202300176163

PATIENT
  Age: 4 Year
  Sex: Male
  Weight: 13.15 kg

DRUGS (1)
  1. GENOTROPIN [Suspect]
     Active Substance: SOMATROPIN
     Indication: Small for dates baby
     Dosage: 0.4 MG, 1X/DAY

REACTIONS (2)
  - Device issue [Unknown]
  - Device mechanical issue [Unknown]
